FAERS Safety Report 11566794 (Version 1)
Quarter: 2015Q3

REPORT INFORMATION
  Report Type: Spontaneous
  Country: US (occurrence: US)
  Receive Date: 20150916
  Receipt Date: 20150916
  Transmission Date: 20151125
  Serious: No
  Sender: FDA-Public Use
  Company Number: US-ELI_LILLY_AND_COMPANY-US200906005737

PATIENT
  Age: 82 Year
  Sex: Female
  Weight: 49.89 kg

DRUGS (2)
  1. FORTEO [Suspect]
     Active Substance: TERIPARATIDE
     Dates: start: 2008
  2. FORTEO [Suspect]
     Active Substance: TERIPARATIDE
     Dates: start: 20090616

REACTIONS (13)
  - Gait disturbance [Unknown]
  - Injection site erythema [Recovered/Resolved]
  - Pain [Unknown]
  - Bone pain [Unknown]
  - Malaise [Unknown]
  - Peripheral swelling [Unknown]
  - Ill-defined disorder [Unknown]
  - Anxiety [Unknown]
  - Anger [Unknown]
  - Crying [Unknown]
  - Nausea [Unknown]
  - Paranoia [Unknown]
  - Arthritis [Unknown]

NARRATIVE: CASE EVENT DATE: 200906
